FAERS Safety Report 17863518 (Version 1)
Quarter: 2020Q2

REPORT INFORMATION
  Report Type: Spontaneous
  Country: DE (occurrence: DE)
  Receive Date: 20200604
  Receipt Date: 20200604
  Transmission Date: 20200714
  Serious: Yes (Hospitalization)
  Sender: FDA-Public Use
  Company Number: NVSC2020DE155047

PATIENT
  Age: 7 Month
  Sex: Female
  Weight: 8 kg

DRUGS (6)
  1. CEFOTAXIME [Suspect]
     Active Substance: CEFOTAXIME SODIUM
     Indication: URINARY TRACT INFECTION
     Dosage: UNK
     Route: 042
     Dates: start: 20190716, end: 20190722
  2. CEFPODOXIME PROXETIL. [Suspect]
     Active Substance: CEFPODOXIME PROXETIL
     Indication: ESCHERICHIA URINARY TRACT INFECTION
     Dosage: 40 OT
     Route: 048
     Dates: start: 20190722, end: 20190724
  3. CEFTAZIDIM [Suspect]
     Active Substance: CEFTAZIDIME
     Indication: URINARY TRACT INFECTION
     Dosage: UNK
     Route: 065
     Dates: start: 20190714, end: 20190715
  4. DEVIT [Concomitant]
     Indication: PROPHYLAXIS
     Dosage: 2400 OT
     Route: 048
  5. INFECTODIARRSTOP [Concomitant]
     Indication: PRODUCT USED FOR UNKNOWN INDICATION
     Dosage: UNK
     Route: 048
  6. AMPICILLIN [Suspect]
     Active Substance: AMPICILLIN
     Indication: URINARY TRACT INFECTION
     Dosage: UNK
     Route: 065
     Dates: start: 20190714, end: 20190715

REACTIONS (2)
  - Haematochezia [Unknown]
  - Vomiting [Unknown]

NARRATIVE: CASE EVENT DATE: 20190727
